FAERS Safety Report 5663555-5 (Version None)
Quarter: 2008Q1

REPORT INFORMATION
  Report Type: 
  Country: None (occurrence: None)
  Receive Date: 20080313
  Receipt Date: 20080306
  Transmission Date: 20080703
  Serious: Yes (Hospitalization)
  Sender: FDA-Public Use
  Company Number: NL-BAXTER-2008BH000443

PATIENT
  Age: 72 Year
  Sex: Female

DRUGS (8)
  1. TISSUCOL/TISSEEL DUO STIM3 [Suspect]
     Indication: BREAST OPERATION
     Route: 065
     Dates: start: 20071101, end: 20071101
  2. TISSUCOL/TISSEEL DUO STIM3 [Suspect]
     Indication: LYMPHADENECTOMY
     Route: 065
     Dates: start: 20071101, end: 20071101
  3. FRAGMIN [Concomitant]
     Route: 058
  4. ZANTAC [Concomitant]
  5. SALMETEROL [Concomitant]
     Route: 055
  6. FLUIMUCIL [Concomitant]
  7. VERAPAMIL [Concomitant]
     Route: 048
  8. AMLODIPINE [Concomitant]

REACTIONS (4)
  - IMPAIRED HEALING [None]
  - POSTOPERATIVE WOUND COMPLICATION [None]
  - SEROMA [None]
  - WOUND INFECTION [None]
